FAERS Safety Report 9113308 (Version 2)
Quarter: 2013Q3

REPORT INFORMATION
  Report Type: Spontaneous
  Country: GB (occurrence: GB)
  Receive Date: 20130211
  Receipt Date: 20130712
  Transmission Date: 20140515
  Serious: Yes (Hospitalization)
  Sender: FDA-Public Use
  Company Number: GB-JNJFOC-20130203052

PATIENT
  Age: 38 Year
  Sex: Female

DRUGS (8)
  1. SIMPONI [Suspect]
     Indication: PSORIATIC ARTHROPATHY
     Route: 058
     Dates: start: 20130101
  2. SIMPONI [Suspect]
     Indication: PSORIATIC ARTHROPATHY
     Route: 058
     Dates: start: 20121215
  3. METHOTREXATE [Concomitant]
     Indication: PSORIATIC ARTHROPATHY
     Route: 065
  4. LODINE [Concomitant]
     Indication: PSORIATIC ARTHROPATHY
     Route: 065
  5. ESCITALOPRAM [Concomitant]
     Indication: DEPRESSION
     Route: 065
  6. FOLIC ACID [Concomitant]
     Indication: PSORIATIC ARTHROPATHY
     Route: 065
  7. AMITRIPTYLINE [Concomitant]
     Indication: PSORIATIC ARTHROPATHY
     Route: 065
  8. PARACETAMOL [Concomitant]
     Indication: PSORIATIC ARTHROPATHY
     Route: 065

REACTIONS (1)
  - Lower respiratory tract infection [Recovered/Resolved]
